FAERS Safety Report 10219394 (Version 2)
Quarter: 2014Q2

REPORT INFORMATION
  Report Type: Spontaneous
  Country: CA (occurrence: CA)
  Receive Date: 20140605
  Receipt Date: 20140605
  Transmission Date: 20141212
  Serious: Yes (Other)
  Sender: FDA-Public Use
  Company Number: CA-ASTRAZENECA-2014SE36039

PATIENT
  Age: 41 Year
  Sex: Male

DRUGS (5)
  1. CRESTOR [Suspect]
     Indication: DYSLIPIDAEMIA
     Route: 048
     Dates: start: 20140318, end: 20140519
  2. AMLODIPINE [Concomitant]
  3. CONCERTA [Concomitant]
  4. PROCTOSEDYL OINTMENT [Concomitant]
     Dosage: TID PM
  5. NAPROXEN [Concomitant]

REACTIONS (3)
  - Gynaecomastia [Recovering/Resolving]
  - Nausea [Not Recovered/Not Resolved]
  - Fatigue [Not Recovered/Not Resolved]
